FAERS Safety Report 23091493 (Version 7)
Quarter: 2024Q4

REPORT INFORMATION
  Report Type: Spontaneous
  Country: US (occurrence: US)
  Receive Date: 20231020
  Receipt Date: 20241007
  Transmission Date: 20250114
  Serious: Yes (Other)
  Sender: BRISTOL MYERS SQUIBB
  Company Number: US-BRISTOL-MYERS SQUIBB COMPANY-2023-145545

PATIENT
  Age: 89 Year
  Sex: Female
  Weight: 53.34 kg

DRUGS (5)
  1. REVLIMID [Suspect]
     Active Substance: LENALIDOMIDE
     Indication: 5q minus syndrome
     Dosage: TAKE 1 WHOLE CAPSULE BY MOUTH WITH WATER W/ OR W/O FOOD AT THE SAME TIME EVERY DAY FOR 21 DAYS OF A
     Route: 048
  2. REVLIMID [Suspect]
     Active Substance: LENALIDOMIDE
     Dosage: TAKE 1 CAPSULE WHOLE BY MOUTH W/WATER, W/ OR W/O ?FOOD, AT AROUND SAME TIME EVERY OTHER DAY
     Route: 048
     Dates: start: 20231006
  3. REVLIMID [Suspect]
     Active Substance: LENALIDOMIDE
     Dosage: TAKE 1 CAPSULE BY MOUTH EVERY DAY WHOLE W/ WATER W/ OR W/O FOOD AT ABOUT THE SAME TIME DAILY FOR 28
     Route: 048
  4. REVLIMID [Suspect]
     Active Substance: LENALIDOMIDE
     Dosage: TAKE 1 CAPSULE BY MOUTH EVERYDAY WHOLE WITH WATER, WITH OR WITHOUT FOOD.
     Route: 048
  5. REVLIMID [Suspect]
     Active Substance: LENALIDOMIDE
     Dosage: TAKE 1 WHOLE CAPSULE BY MOUTH WITH WATER W/ OR ?W/O FOOD AT THE SAME TIME EVERY DAY
     Route: 048

REACTIONS (13)
  - Pneumonia [Unknown]
  - Gait disturbance [Unknown]
  - Constipation [Unknown]
  - Pulmonary oedema [Unknown]
  - Fatigue [Unknown]
  - Asthenia [Recovering/Resolving]
  - Dyspnoea [Unknown]
  - Pain in extremity [Recovering/Resolving]
  - Off label use [Unknown]
  - Cough [Unknown]
  - Product temperature excursion issue [Unknown]
  - Product dose omission issue [Unknown]
  - Product dose omission in error [Unknown]
